FAERS Safety Report 5942721-5 (Version None)
Quarter: 2008Q4

REPORT INFORMATION
  Report Type: 
  Country: None (occurrence: None)
  Receive Date: 20081106
  Receipt Date: 20081027
  Transmission Date: 20090506
  Serious: Yes (Other)
  Sender: FDA-Public Use
  Company Number: SE-JNJFOC-20081007019

PATIENT
  Sex: Male

DRUGS (2)
  1. REMICADE [Suspect]
     Indication: PSORIASIS
     Dosage: ^DURING 6-8 YEARS^
     Route: 042
  2. METHOTREXATE [Concomitant]

REACTIONS (1)
  - VISUAL ACUITY REDUCED [None]
